FAERS Safety Report 8876114 (Version 1)
Quarter: 2012Q4

REPORT INFORMATION
  Report Type: 
  Country: TR (occurrence: TR)
  Receive Date: 20121030
  Receipt Date: 20121030
  Transmission Date: 20130627
  Serious: Yes (Death, Other)
  Sender: FDA-Public Use
  Company Number: TR-WATSON-2012-18314

PATIENT
  Age: 36 Year
  Sex: Female

DRUGS (2)
  1. PREDNISONE (UNKNOWN) [Suspect]
     Indication: EOSINOPHILIC PNEUMONIA CHRONIC
     Dosage: 10 mg, daily
     Route: 065
  2. PREDNISONE (UNKNOWN) [Suspect]
     Dosage: 40 mg, daily
     Route: 065

REACTIONS (2)
  - Amenorrhoea [Unknown]
  - Major depression [Unknown]
